FAERS Safety Report 13510500 (Version 1)
Quarter: 2017Q2

REPORT INFORMATION
  Report Type: Spontaneous
  Country: IT (occurrence: IT)
  Receive Date: 20170503
  Receipt Date: 20170503
  Transmission Date: 20170830
  Serious: Yes (Life-Threatening, Hospitalization)
  Sender: FDA-Public Use
  Company Number: IT-JNJFOC-20170501739

PATIENT
  Age: 74 Year
  Sex: Male

DRUGS (6)
  1. XARELTO [Suspect]
     Active Substance: RIVAROXABAN
     Indication: PRODUCT USED FOR UNKNOWN INDICATION
     Dosage: DOSAGE: UNKNOWN
     Route: 048
  2. PANTOPRAZOLE [Concomitant]
     Active Substance: PANTOPRAZOLE
     Dosage: DOSAGE: UNKNOWN
     Route: 065
  3. SIMVASTATIN. [Concomitant]
     Active Substance: SIMVASTATIN
     Dosage: DOSAGE: UNKNOWN
     Route: 065
  4. TAPAZOLE [Concomitant]
     Active Substance: METHIMAZOLE
     Dosage: DOSAGE: UNKNOWN
     Route: 065
  5. XATRAL [Concomitant]
     Active Substance: ALFUZOSIN
     Dosage: DOSAGE: UNKNOWN
     Route: 065
  6. COAPROVEL [Concomitant]
     Active Substance: HYDROCHLOROTHIAZIDE\IRBESARTAN
     Dosage: DOSAGE: UNKNOWN
     Route: 065

REACTIONS (3)
  - Cerebral haemorrhage [Unknown]
  - Confusional state [Unknown]
  - Brain oedema [Unknown]

NARRATIVE: CASE EVENT DATE: 20170424
